FAERS Safety Report 22127566 (Version 1)
Quarter: 2023Q1

REPORT INFORMATION
  Report Type: Report from Study
  Country: IT (occurrence: IT)
  Receive Date: 20230323
  Receipt Date: 20230323
  Transmission Date: 20230417
  Serious: Yes (Other)
  Sender: FDA-Public Use
  Company Number: None

PATIENT
  Age: 78 Year
  Sex: Female

DRUGS (6)
  1. XARELTO [Suspect]
     Active Substance: RIVAROXABAN
     Indication: Product used for unknown indication
     Dosage: UNK
     Route: 048
     Dates: start: 20220101
  2. LANTUS [Concomitant]
     Active Substance: INSULIN GLARGINE
  3. METFORMIN HYDROCHLORIDE [Concomitant]
     Active Substance: METFORMIN HYDROCHLORIDE
  4. FUROSEMIDE [Concomitant]
     Active Substance: FUROSEMIDE
  5. ALLOPURINOL [Concomitant]
     Active Substance: ALLOPURINOL
  6. NOVORAPID [Concomitant]
     Active Substance: INSULIN ASPART

REACTIONS (1)
  - Anaemia [Recovering/Resolving]
